FAERS Safety Report 5951177-8 (Version None)
Quarter: 2008Q4

REPORT INFORMATION
  Report Type: 
  Country: None (occurrence: None)
  Receive Date: 20081112
  Receipt Date: 20081112
  Transmission Date: 20090506
  Serious: Yes (Death)
  Sender: FDA-Public Use
  Company Number: None

PATIENT
  Age: 21 Year
  Sex: Female
  Weight: 75.2971 kg

DRUGS (1)
  1. NUVARING [Suspect]
     Indication: CONTRACEPTION
     Dosage: VAG
     Route: 067
     Dates: start: 20080516, end: 20080516

REACTIONS (4)
  - CARDIAC ARREST [None]
  - CONVULSION [None]
  - PULMONARY EMBOLISM [None]
  - THROMBOSIS [None]
